FAERS Safety Report 25384782 (Version 2)
Quarter: 2025Q2

REPORT INFORMATION
  Report Type: Report from Study
  Country: US (occurrence: US)
  Receive Date: 20250602
  Receipt Date: 20250605
  Transmission Date: 20250717
  Serious: Yes (Other)
  Sender: ABBVIE
  Company Number: US-ABBVIE-6302476

PATIENT
  Sex: Male

DRUGS (3)
  1. RESTASIS [Suspect]
     Active Substance: CYCLOSPORINE
     Indication: Dry eye
     Route: 047
     Dates: start: 20250519
  2. RESTASIS [Suspect]
     Active Substance: CYCLOSPORINE
     Route: 047
     Dates: start: 200101
  3. REFRESH TEARS [Suspect]
     Active Substance: CARBOXYMETHYLCELLULOSE SODIUM
     Indication: Multiple allergies
     Route: 047

REACTIONS (4)
  - Eye irritation [Unknown]
  - Multiple allergies [Unknown]
  - Glaucoma [Unknown]
  - Cataract [Unknown]
